FAERS Safety Report 4830815-7 (Version None)
Quarter: 2005Q4

REPORT INFORMATION
  Report Type: 
  Country: None (occurrence: None)
  Receive Date: 20051117
  Receipt Date: 20050310
  Transmission Date: 20060501
  Serious: Yes (Hospitalization, Disabling)
  Sender: FDA-Public Use
  Company Number: US-MERCK-0503USA02215

PATIENT
  Age: 49 Year
  Sex: Male
  Weight: 82 kg

DRUGS (10)
  1. VIOXX [Suspect]
     Indication: RHEUMATOID ARTHRITIS
     Route: 048
     Dates: start: 20000306
  2. VIOXX [Suspect]
     Route: 048
     Dates: start: 20010101, end: 20021201
  3. VIOXX [Suspect]
     Route: 048
     Dates: start: 20030601, end: 20041001
  4. VIOXX [Suspect]
     Route: 048
     Dates: start: 20021201
  5. VIOXX [Suspect]
     Indication: SPINAL COLUMN STENOSIS
     Route: 048
     Dates: start: 20000306
  6. VIOXX [Suspect]
     Route: 048
     Dates: start: 20010101, end: 20021201
  7. VIOXX [Suspect]
     Route: 048
     Dates: start: 20030601, end: 20041001
  8. VIOXX [Suspect]
     Route: 048
     Dates: start: 20021201
  9. TYLENOL W/ CODEINE NO. 3 [Concomitant]
     Route: 065
  10. VICODIN [Concomitant]
     Route: 065

REACTIONS (33)
  - ACUTE MYOCARDIAL INFARCTION [None]
  - ARTERIOSCLEROSIS CORONARY ARTERY [None]
  - ARTHRALGIA [None]
  - ATRIOVENTRICULAR BLOCK FIRST DEGREE [None]
  - BACK PAIN [None]
  - CARDIAC FAILURE CONGESTIVE [None]
  - CORONARY ARTERY DISEASE [None]
  - CORONARY ARTERY STENOSIS [None]
  - COSTOCHONDRITIS [None]
  - DILATATION ATRIAL [None]
  - DRUG INEFFECTIVE [None]
  - EMOTIONAL DISTRESS [None]
  - GASTROOESOPHAGEAL REFLUX DISEASE [None]
  - HEART RATE DECREASED [None]
  - HYPERLIPIDAEMIA [None]
  - HYPERTENSION [None]
  - ILIAC ARTERY OCCLUSION [None]
  - INTERMITTENT CLAUDICATION [None]
  - LIPOMA [None]
  - LOW DENSITY LIPOPROTEIN INCREASED [None]
  - LUMBAR SPINAL STENOSIS [None]
  - MITRAL VALVE INCOMPETENCE [None]
  - MUSCULOSKELETAL CHEST PAIN [None]
  - MYOCARDIAL INFARCTION [None]
  - PERIPHERAL VASCULAR DISORDER [None]
  - PROSTATE CANCER [None]
  - RALES [None]
  - RAYNAUD'S PHENOMENON [None]
  - RIB FRACTURE [None]
  - SCROTAL HAEMATOMA [None]
  - VENTRICULAR DYSFUNCTION [None]
  - VENTRICULAR FIBRILLATION [None]
  - VENTRICULAR HYPERTROPHY [None]
